FAERS Safety Report 4831328-9 (Version None)
Quarter: 2005Q4

REPORT INFORMATION
  Report Type: 
  Country: None (occurrence: None)
  Receive Date: 20051114
  Receipt Date: 20051027
  Transmission Date: 20060501
  Serious: Yes (Hospitalization)
  Sender: FDA-Public Use
  Company Number: 219167

PATIENT
  Age: 75 Year
  Sex: Male

DRUGS (5)
  1. AVASTIN [Suspect]
     Indication: COLORECTAL CANCER
     Dosage: 472 MG, Q3W, INTRAVENOUS
     Route: 042
     Dates: start: 20050913
  2. CAPECITABINE (CAPECITABINE) [Suspect]
     Indication: COLORECTAL CANCER
     Dosage: 3000 MG, QD, ORAL
     Route: 048
     Dates: start: 20050913
  3. OXALIPLATIN (OXALIPLATIN) [Suspect]
     Indication: COLORECTAL CANCER
     Dosage: 222 MG, Q3W, INTRAVENOUS
     Route: 042
     Dates: start: 20050913
  4. LOPERAMIDE [Concomitant]
  5. ASCAL (CARBASPIRIN CALCIUM) [Concomitant]

REACTIONS (2)
  - DIARRHOEA [None]
  - PYREXIA [None]
